FAERS Safety Report 22133760 (Version 4)
Quarter: 2023Q2

REPORT INFORMATION
  Report Type: Report from Study
  Country: FR (occurrence: FR)
  Receive Date: 20230324
  Receipt Date: 20230504
  Transmission Date: 20230721
  Serious: Yes (Hospitalization)
  Sender: FDA-Public Use
  Company Number: FR-JNJFOC-20230307715

PATIENT
  Age: 70 Year
  Sex: Male
  Weight: 103 kg

DRUGS (6)
  1. APALUTAMIDE [Suspect]
     Active Substance: APALUTAMIDE
     Indication: Prostate cancer
     Route: 048
     Dates: start: 20221005, end: 20230223
  2. GONADORELIN [Suspect]
     Active Substance: GONADORELIN
     Indication: Prostate cancer
     Route: 065
     Dates: start: 20221102, end: 20230105
  3. BISOPROLOL [Concomitant]
     Active Substance: BISOPROLOL
     Dosage: 2.5
     Route: 048
     Dates: start: 2015
  4. AMIODARONE [Concomitant]
     Active Substance: AMIODARONE
     Route: 048
     Dates: start: 2015
  5. GLYCOPYRROLATE\INDACATEROL MALEATE [Concomitant]
     Active Substance: GLYCOPYRROLATE\INDACATEROL MALEATE
     Dosage: 1
     Route: 048
     Dates: start: 2015
  6. CHOLECALCIFEROL [Concomitant]
     Active Substance: CHOLECALCIFEROL
     Route: 048
     Dates: start: 20220927

REACTIONS (2)
  - Panic attack [Not Recovered/Not Resolved]
  - Suicidal ideation [Not Recovered/Not Resolved]

NARRATIVE: CASE EVENT DATE: 20230227
